FAERS Safety Report 14900393 (Version 1)
Quarter: 2018Q2

REPORT INFORMATION
  Report Type: Spontaneous
  Country: PL (occurrence: PL)
  Receive Date: 20180516
  Receipt Date: 20180516
  Transmission Date: 20180711
  Serious: Yes (Other)
  Sender: FDA-Public Use
  Company Number: PL-SA-2018SA109479

PATIENT
  Age: 49 Year
  Sex: Male
  Weight: 68 kg

DRUGS (5)
  1. BETALOC ZOK [Concomitant]
     Active Substance: METOPROLOL SUCCINATE
     Indication: HYPERTENSION
     Route: 065
     Dates: start: 20100101
  2. ADVAGRAF [Concomitant]
     Active Substance: TACROLIMUS
     Indication: IMMUNOSUPPRESSION
     Route: 065
     Dates: start: 20061208
  3. CELLCEPT [Concomitant]
     Active Substance: MYCOPHENOLATE MOFETIL\MYCOPHENOLATE MOFETIL HYDROCHLORIDE
     Indication: IMMUNOSUPPRESSION
     Route: 065
     Dates: start: 20061208
  4. PREDNISONE. [Concomitant]
     Active Substance: PREDNISONE
     Indication: IMMUNOSUPPRESSION
     Route: 065
     Dates: start: 20061208
  5. FABRAZYME [Suspect]
     Active Substance: AGALSIDASE BETA
     Indication: FABRY^S DISEASE
     Route: 041
     Dates: start: 20070116

REACTIONS (5)
  - Angiokeratoma [Not Recovered/Not Resolved]
  - Mitral valve incompetence [Unknown]
  - Left ventricular hypertrophy [Unknown]
  - Aortic valve incompetence [Unknown]
  - Aortic aneurysm [Unknown]
